FAERS Safety Report 6907355-4 (Version None)
Quarter: 2010Q3

REPORT INFORMATION
  Report Type: 
  Country: None (occurrence: None)
  Receive Date: 20100802
  Receipt Date: 20100719
  Transmission Date: 20110219
  Serious: Yes (Hospitalization, Other)
  Sender: FDA-Public Use
  Company Number: 2010-1516

PATIENT
  Age: 72 Year
  Sex: Male

DRUGS (6)
  1. APO-GO AMPOULES (APO-GO) (APOMORPHINE HYDROCHLORIDE0 (APOMORPHINE HYDR [Suspect]
     Indication: RESTLESS LEGS SYNDROME
     Dosage: SUBCUTANEOUS ; SUBCUTANEOUS
     Route: 058
     Dates: start: 20090224, end: 20090311
  2. APO-GO AMPOULES (APO-GO) (APOMORPHINE HYDROCHLORIDE0 (APOMORPHINE HYDR [Suspect]
     Indication: RESTLESS LEGS SYNDROME
     Dosage: SUBCUTANEOUS ; SUBCUTANEOUS
     Route: 058
     Dates: start: 20090313, end: 20100405
  3. METFORMIN HCL [Concomitant]
  4. GLICAZIDE (GLICLAZIDE) [Concomitant]
  5. SIMVASTATIN [Concomitant]
  6. METRONIDAZOLE [Concomitant]

REACTIONS (7)
  - CLOSTRIDIAL INFECTION [None]
  - DEBRIDEMENT [None]
  - FATIGUE [None]
  - HEPATITIS C [None]
  - INFUSION SITE NECROSIS [None]
  - LOSS OF CONSCIOUSNESS [None]
  - MALAISE [None]
